FAERS Safety Report 5637511-7 (Version None)
Quarter: 2008Q1

REPORT INFORMATION
  Report Type: 
  Country: None (occurrence: None)
  Receive Date: 20080225
  Receipt Date: 20080213
  Transmission Date: 20080703
  Serious: Yes (Other)
  Sender: FDA-Public Use
  Company Number: JP-PFIZER INC-2008014500

PATIENT
  Sex: Male

DRUGS (2)
  1. NORVASC [Suspect]
     Dosage: DAILY DOSE:2.5MG
     Route: 048
  2. NORVASC [Suspect]
     Dosage: DAILY DOSE:5MG
     Route: 048

REACTIONS (3)
  - CONVULSION [None]
  - FLANK PAIN [None]
  - URINARY RETENTION [None]
